FAERS Safety Report 23878474 (Version 1)
Quarter: 2024Q2

REPORT INFORMATION
  Report Type: Report from Study
  Country: US (occurrence: US)
  Receive Date: 20240521
  Receipt Date: 20240521
  Transmission Date: 20240716
  Serious: Yes (Hospitalization, Other)
  Sender: FDA-Public Use
  Company Number: US-BAYER-2024A047599

PATIENT
  Age: 58 Year
  Sex: Female
  Weight: 53.968 kg

DRUGS (36)
  1. ADEMPAS [Suspect]
     Active Substance: RIOCIGUAT
     Indication: Pulmonary arterial hypertension
     Dosage: UNK
     Route: 048
     Dates: start: 20230217
  2. ADEMPAS [Suspect]
     Active Substance: RIOCIGUAT
     Indication: Pulmonary arterial hypertension
     Dosage: 2 MG, TID
     Route: 048
  3. ADEMPAS [Suspect]
     Active Substance: RIOCIGUAT
     Indication: Pulmonary arterial hypertension
     Dosage: 2.5 MG, TID
     Route: 048
  4. VELETRI [Suspect]
     Active Substance: EPOPROSTENOL
     Dosage: 2 NANOGRAMS PER KILOGRAM PER MINUTE
  5. VELETRI [Suspect]
     Active Substance: EPOPROSTENOL
     Dosage: UNK
     Dates: start: 20240418
  6. TIKOSYN [Concomitant]
     Active Substance: DOFETILIDE
  7. LIPITOR [Concomitant]
     Active Substance: ATORVASTATIN CALCIUM
  8. MOVANTIK [Concomitant]
     Active Substance: NALOXEGOL OXALATE
  9. SINGULAIR [Concomitant]
     Active Substance: MONTELUKAST SODIUM
  10. EPINEPHRINE [Concomitant]
     Active Substance: EPINEPHRINE
  11. FOLIC ACID [Concomitant]
     Active Substance: FOLIC ACID
  12. ACETAMINOPHEN\HYDROCODONE [Concomitant]
     Active Substance: ACETAMINOPHEN\HYDROCODONE
  13. LASIX [Concomitant]
     Active Substance: FUROSEMIDE
  14. TOPAMAX [Concomitant]
     Active Substance: TOPIRAMATE
  15. TRINTELLIX [Concomitant]
     Active Substance: VORTIOXETINE HYDROBROMIDE
  16. POTASSIUM CHLORIDE [Concomitant]
     Active Substance: POTASSIUM CHLORIDE
  17. ESOMEPRAZOLE [Concomitant]
     Active Substance: ESOMEPRAZOLE
  18. CALCIUM\CHOLECALCIFEROL [Concomitant]
     Active Substance: CALCIUM\CHOLECALCIFEROL
  19. XARELTO [Concomitant]
     Active Substance: RIVAROXABAN
  20. MUCINEX [Concomitant]
     Active Substance: GUAIFENESIN
  21. METOPROLOL SUCCINATE [Concomitant]
     Active Substance: METOPROLOL SUCCINATE
  22. CELEBREX [Concomitant]
     Active Substance: CELECOXIB
  23. VITAMINS [Concomitant]
     Active Substance: VITAMINS
  24. NURTEC ODT [Concomitant]
     Active Substance: RIMEGEPANT SULFATE
  25. CHOLECALCIFEROL [Concomitant]
     Active Substance: CHOLECALCIFEROL
  26. ACTEMRA [Concomitant]
     Active Substance: TOCILIZUMAB
  27. DIGOXIN [Concomitant]
     Active Substance: DIGOXIN
  28. CYPROHEPTADINE HYDROCHLORIDE [Concomitant]
     Active Substance: CYPROHEPTADINE HYDROCHLORIDE
  29. AIMOVIG [Concomitant]
     Active Substance: ERENUMAB-AOOE
  30. AZITHROMYCIN [Concomitant]
     Active Substance: AZITHROMYCIN
  31. ASPIRIN [Concomitant]
     Active Substance: ASPIRIN
  32. CYCLOBENZAPRINE HYDROCHLORIDE [Concomitant]
     Active Substance: CYCLOBENZAPRINE HYDROCHLORIDE
  33. ONDANSETRON HYDROCHLORIDE [Concomitant]
     Active Substance: ONDANSETRON HYDROCHLORIDE
  34. STERILE WATER [Concomitant]
     Active Substance: WATER
  35. SODIUM CHLORIDE [Concomitant]
     Active Substance: SODIUM CHLORIDE
  36. SODIUM CHLORIDE [Concomitant]
     Active Substance: SODIUM CHLORIDE

REACTIONS (14)
  - Pulmonary arterial hypertension [None]
  - Heart valve incompetence [None]
  - Hiatus hernia [None]
  - Hypersensitivity [None]
  - Mobility decreased [None]
  - Pain in jaw [Not Recovered/Not Resolved]
  - Migraine [Not Recovered/Not Resolved]
  - Hypersomnia [None]
  - Fluid retention [None]
  - Headache [Not Recovered/Not Resolved]
  - Nausea [Not Recovered/Not Resolved]
  - Vomiting [None]
  - Bone pain [None]
  - Illness [None]
